FAERS Safety Report 4996961-2 (Version None)
Quarter: 2006Q1

REPORT INFORMATION
  Report Type: 
  Country: None (occurrence: None)
  Receive Date: 20060315
  Receipt Date: 20051215
  Transmission Date: 20060701
  Serious: Yes (Other)
  Sender: FDA-Public Use
  Company Number: 429020

PATIENT
  Sex: Female

DRUGS (3)
  1. BONIVA [Suspect]
     Indication: DRUG USE FOR UNKNOWN INDICATION
     Dosage: 1 PER MONTH
     Dates: start: 20050615
  2. SYNTHROID [Concomitant]
  3. PREVACID [Concomitant]

REACTIONS (2)
  - DYSPEPSIA [None]
  - PAIN IN EXTREMITY [None]
